FAERS Safety Report 14502396 (Version 2)
Quarter: 2018Q1

REPORT INFORMATION
  Report Type: Spontaneous
  Country: DE (occurrence: DE)
  Receive Date: 20180208
  Receipt Date: 20180222
  Transmission Date: 20180509
  Serious: Yes (Life-Threatening)
  Sender: FDA-Public Use
  Company Number: DE-WEST-WARD PHARMACEUTICALS CORP.-DE-H14001-18-00818

PATIENT
  Age: 52 Year
  Sex: Male
  Weight: 83 kg

DRUGS (6)
  1. FOLINIC ACID [Suspect]
     Active Substance: LEUCOVORIN
     Indication: COLORECTAL CANCER METASTATIC
     Dosage: 400 MG, UNK
     Route: 065
     Dates: start: 20170711
  2. PANITUMUMAB [Suspect]
     Active Substance: PANITUMUMAB
     Indication: COLORECTAL CANCER METASTATIC
     Dosage: 500 MG, UNK
     Route: 042
     Dates: start: 20170712
  3. FLUOROURACIL. [Suspect]
     Active Substance: FLUOROURACIL
     Indication: COLORECTAL CANCER METASTATIC
     Dosage: 800 MG, UNK
     Route: 040
     Dates: start: 20170711
  4. FLUOROURACIL. [Suspect]
     Active Substance: FLUOROURACIL
     Dosage: 1200 UNK, UNK
     Route: 042
     Dates: start: 20170711
  5. PANITUMUMAB [Suspect]
     Active Substance: PANITUMUMAB
     Dosage: 500 UNK, UNK
     Route: 042
     Dates: start: 20171128
  6. PEGYLATED LIPOSOMAL IRINOTECAN [Suspect]
     Active Substance: IRINOTECAN HYDROCHLORIDE
     Indication: COLORECTAL CANCER METASTATIC
     Dosage: 360 MG, UNK
     Route: 065
     Dates: start: 20170711

REACTIONS (1)
  - Rash [Recovered/Resolved]

NARRATIVE: CASE EVENT DATE: 20171101
